FAERS Safety Report 4416539-9 (Version None)
Quarter: 2004Q3

REPORT INFORMATION
  Report Type: 
  Country: None (occurrence: None)
  Receive Date: 20040802
  Receipt Date: 20040723
  Transmission Date: 20050211
  Serious: Yes (Hospitalization)
  Sender: FDA-Public Use
  Company Number: MK200407-0196-1

PATIENT
  Age: 31 Year
  Sex: Male

DRUGS (2)
  1. ANAFRANIL CAP [Suspect]
  2. LUVOX [Suspect]

REACTIONS (2)
  - PRIAPISM [None]
  - THERAPY NON-RESPONDER [None]
